FAERS Safety Report 8346809-3 (Version None)
Quarter: 2012Q2

REPORT INFORMATION
  Report Type: 
  Country: None (occurrence: None)
  Receive Date: 20120509
  Receipt Date: 20120503
  Transmission Date: 20120825
  Serious: Yes (Other)
  Sender: FDA-Public Use
  Company Number: BE-PFIZER INC-2012110437

PATIENT
  Age: 66 Year

DRUGS (1)
  1. TORISEL [Suspect]
     Indication: MANTLE CELL LYMPHOMA
     Dosage: 175 MG, UNK

REACTIONS (1)
  - INTESTINAL PERFORATION [None]
